FAERS Safety Report 6859991-1 (Version None)
Quarter: 2010Q3

REPORT INFORMATION
  Report Type: 
  Country: None (occurrence: None)
  Receive Date: 20100720
  Receipt Date: 20100709
  Transmission Date: 20110219
  Serious: Yes (Hospitalization)
  Sender: FDA-Public Use
  Company Number: JP-PFIZER INC-2010075478

PATIENT
  Age: 69 Year
  Sex: Female
  Weight: 40 kg

DRUGS (2)
  1. ZITHROMAC SR [Suspect]
     Indication: NASOPHARYNGITIS
     Dosage: 2 G, SINGLE
     Route: 048
     Dates: start: 20100611, end: 20100611
  2. FAROM [Suspect]
     Indication: NASOPHARYNGITIS
     Dosage: 60 MG, 3X/DAY
     Route: 048
     Dates: start: 20100603, end: 20100608

REACTIONS (3)
  - HEPATITIS ACUTE [None]
  - INTERSTITIAL LUNG DISEASE [None]
  - NAUSEA [None]
